FAERS Safety Report 4539097-7 (Version None)
Quarter: 2004Q4

REPORT INFORMATION
  Report Type: 
  Country: None (occurrence: None)
  Receive Date: 20041223
  Receipt Date: 20041015
  Transmission Date: 20050328
  Serious: No
  Sender: FDA-Public Use
  Company Number: US-JNJFOC-20041005099

PATIENT
  Age: 38 Year
  Sex: Female
  Weight: 61.2356 kg

DRUGS (5)
  1. ORTHO EVRA [Suspect]
     Indication: CONTRACEPTION
     Dosage: 1 DOSE(S), 3 IN 4 WEEK, TRANSDERMAL
     Route: 062
  2. EFFEXOR [Concomitant]
  3. MULTIVITAMIN (MULTIVITAMINS) [Concomitant]
  4. ALLEGRA [Concomitant]
  5. ZYRTEX (OLANZAPINE) [Concomitant]

REACTIONS (6)
  - APPLICATION SITE REACTION [None]
  - BREAST TENDERNESS [None]
  - DEPRESSION [None]
  - MOOD SWINGS [None]
  - NAUSEA [None]
  - SKIN ULCER [None]
